FAERS Safety Report 16439891 (Version 1)
Quarter: 2019Q3

REPORT INFORMATION
  Report Type: Spontaneous
  Country: US (occurrence: US)
  Receive Date: 20190615
  Receipt Date: 20190615
  Transmission Date: 20191004
  Serious: No
  Sender: FDA-Public Use
  Company Number: None

PATIENT
  Age: 39 Year

DRUGS (1)
  1. HYDROCODONE-ACETAMIN 10-325MG [Suspect]
     Active Substance: ACETAMINOPHEN\HYDROCODONE
     Indication: PAIN MANAGEMENT
     Dosage: ?          QUANTITY:1 TABLET(S);?
     Route: 048
     Dates: start: 20190614

REACTIONS (6)
  - Headache [None]
  - Dyspepsia [None]
  - Inadequate analgesia [None]
  - Therapeutic product effect decreased [None]
  - Product substitution issue [None]
  - Product complaint [None]

NARRATIVE: CASE EVENT DATE: 20190614
